FAERS Safety Report 5010068-X (Version None)
Quarter: 2006Q2

REPORT INFORMATION
  Report Type: 
  Country: None (occurrence: None)
  Receive Date: 20060523
  Receipt Date: 20060510
  Transmission Date: 20061013
  Serious: Yes (Hospitalization)
  Sender: FDA-Public Use
  Company Number: 2006057955

PATIENT
  Age: 69 Year
  Sex: Male
  Weight: 102 kg

DRUGS (8)
  1. SUTENT [Suspect]
     Indication: METASTATIC RENAL CELL CARCINOMA
     Dosage: 50 MG (50 MG, OD INTERVAL:  DAILY), ORAL
     Route: 048
     Dates: start: 20060331, end: 20060427
  2. AMLODIPINE [Concomitant]
  3. LEVOTHYROXINE SODIUM [Concomitant]
  4. SODIUM BICARBONATE IN PLASTIC CONTAINER [Concomitant]
  5. CHININ (QUININE HYDROCHLORIDE) [Concomitant]
  6. PHENPROCOUMON (PHENPROCOUMON) [Concomitant]
  7. FUROSEMIDE [Concomitant]
  8. BISOPROLOL FUMARATE [Concomitant]

REACTIONS (3)
  - BLOOD CREATINE PHOSPHOKINASE INCREASED [None]
  - BLOOD CREATINE PHOSPHOKINASE MB INCREASED [None]
  - BUNDLE BRANCH BLOCK RIGHT [None]
